FAERS Safety Report 9152231 (Version 1)
Quarter: 2013Q1

REPORT INFORMATION
  Report Type: Spontaneous
  Country: US (occurrence: US)
  Receive Date: 20130308
  Receipt Date: 20130308
  Transmission Date: 20140127
  Serious: No
  Sender: FDA-Public Use
  Company Number: US-ASTRAZENECA-2013SE12808

PATIENT
  Age: 22958 Day
  Sex: Female
  Weight: 90.7 kg

DRUGS (3)
  1. NEXIUM [Suspect]
     Indication: GASTROOESOPHAGEAL REFLUX DISEASE
     Route: 048
     Dates: start: 20121113, end: 20121124
  2. ZESTRIL [Suspect]
     Indication: HYPERTENSION
     Route: 048
  3. TOPROL  XL [Suspect]
     Indication: HYPERTENSION
     Route: 048

REACTIONS (3)
  - Palpitations [Recovering/Resolving]
  - Cardiac flutter [Recovering/Resolving]
  - Weight increased [Not Recovered/Not Resolved]
